FAERS Safety Report 17650128 (Version 1)
Quarter: 2020Q2

REPORT INFORMATION
  Report Type: Spontaneous
  Country: US (occurrence: US)
  Receive Date: 20200409
  Receipt Date: 20200409
  Transmission Date: 20200713
  Serious: No
  Sender: FDA-Public Use
  Company Number: None

PATIENT
  Age: 29 Year
  Sex: Female
  Weight: 65.77 kg

DRUGS (1)
  1. PARAGARD T 380A [Suspect]
     Active Substance: COPPER

REACTIONS (4)
  - Therapeutic product ineffective [None]
  - Pregnancy with contraceptive device [None]
  - Abortion induced [None]
  - Pregnancy test positive [None]

NARRATIVE: CASE EVENT DATE: 20200409
